FAERS Safety Report 7866248-9 (Version None)
Quarter: 2011Q4

REPORT INFORMATION
  Report Type: 
  Country: None (occurrence: None)
  Receive Date: 20111028
  Receipt Date: 20110518
  Transmission Date: 20120403
  Serious: No
  Sender: FDA-Public Use
  Company Number: US-GLAXOSMITHKLINE-A0927831A

PATIENT
  Age: 85 Year
  Sex: Female

DRUGS (5)
  1. THYROID MEDICATION [Concomitant]
  2. ALBUTEROL [Concomitant]
  3. BLOOD THINNER [Concomitant]
  4. BLOOD PRESSURE MEDICATION [Concomitant]
  5. ADVAIR DISKUS 100/50 [Suspect]
     Indication: EMPHYSEMA
     Dosage: 1PUFF TWICE PER DAY
     Route: 055
     Dates: start: 19970101

REACTIONS (4)
  - DYSPNOEA [None]
  - PRODUCT QUALITY ISSUE [None]
  - CHEST DISCOMFORT [None]
  - CONDITION AGGRAVATED [None]
